FAERS Safety Report 11797821 (Version 5)
Quarter: 2016Q3

REPORT INFORMATION
  Report Type: Report from Study
  Country: US (occurrence: US)
  Receive Date: 20151203
  Receipt Date: 20160714
  Transmission Date: 20161109
  Serious: Yes (Other)
  Sender: FDA-Public Use
  Company Number: US-009507513-1512USA001205

PATIENT
  Age: 25 Year
  Sex: Female

DRUGS (2)
  1. RIBAVIRIN. [Suspect]
     Active Substance: RIBAVIRIN
     Indication: HEPATITIS C
     Dosage: UNK
     Route: 048
     Dates: start: 20150519, end: 20150801
  2. VITAFOL CAPLET [Suspect]
     Active Substance: ALPHA-TOCOPHEROL\ASCORBIC ACID\CALCIUM\CYANOCOBALAMIN\FOLIC ACID\IRON\NIACIN\PYRIDOXINE HYDROCHLORIDE\RIBOFLAVIN\THIAMINE MONONITRATE\VITAMIN A\VITAMIN D
     Indication: PRENATAL CARE
     Dosage: TOTAL DAILY DOSE 1 TABLET
     Route: 048
     Dates: start: 20150924

REACTIONS (3)
  - Urinary tract infection [Recovered/Resolved]
  - Maternal exposure before pregnancy [Recovered/Resolved]
  - Urinary tract infection [Not Recovered/Not Resolved]

NARRATIVE: CASE EVENT DATE: 20151020
